FAERS Safety Report 16162315 (Version 1)
Quarter: 2019Q2

REPORT INFORMATION
  Report Type: Spontaneous
  Country: FR (occurrence: FR)
  Receive Date: 20190405
  Receipt Date: 20190405
  Transmission Date: 20190711
  Serious: Yes (Hospitalization, Other)
  Sender: FDA-Public Use
  Company Number: FR-AUROBINDO-AUR-APL-2019-017772

PATIENT

DRUGS (8)
  1. LEVOTHYROXINE. [Concomitant]
     Active Substance: LEVOTHYROXINE
     Indication: PRODUCT USED FOR UNKNOWN INDICATION
     Dosage: UNK
     Route: 065
  2. PERINDOPRIL [Suspect]
     Active Substance: PERINDOPRIL
     Indication: HYPERTENSION
     Dosage: 4 MILLIGRAM
     Route: 048
     Dates: start: 2009, end: 20190203
  3. METFORMIN [Suspect]
     Active Substance: METFORMIN HYDROCHLORIDE
     Dosage: 2500 MILLIGRAM, ONCE A DAY
     Route: 048
     Dates: start: 1999, end: 20190208
  4. DIAMICRON [Suspect]
     Active Substance: GLICLAZIDE
     Indication: TYPE 2 DIABETES MELLITUS
     Dosage: 120 MILLIGRAM, ONCE A DAY
     Route: 048
     Dates: start: 2009, end: 20190208
  5. XARELTO [Suspect]
     Active Substance: RIVAROXABAN
     Indication: ATRIAL FIBRILLATION
     Dosage: 15 MILLIGRAM
     Route: 048
     Dates: start: 201806, end: 20190207
  6. CRESTOR [Suspect]
     Active Substance: ROSUVASTATIN CALCIUM
     Indication: DYSLIPIDAEMIA
     Dosage: 10 MILLIGRAM
     Route: 048
     Dates: start: 2012, end: 20190213
  7. ATENOLOL. [Concomitant]
     Active Substance: ATENOLOL
     Indication: PRODUCT USED FOR UNKNOWN INDICATION
     Dosage: UNK
     Route: 065
  8. PAROXETINE HYDROCHLORIDE. [Concomitant]
     Active Substance: PAROXETINE HYDROCHLORIDE
     Indication: PRODUCT USED FOR UNKNOWN INDICATION
     Dosage: UNK
     Route: 065

REACTIONS (1)
  - Renal tubular disorder [Not Recovered/Not Resolved]

NARRATIVE: CASE EVENT DATE: 20190208
